FAERS Safety Report 23995071 (Version 1)
Quarter: 2024Q2

REPORT INFORMATION
  Report Type: Spontaneous
  Country: US (occurrence: None)
  Receive Date: 20240619
  Receipt Date: 20240619
  Transmission Date: 20240716
  Serious: Yes (Hospitalization)
  Sender: FDA-Public Use
  Company Number: None

PATIENT
  Sex: Female
  Weight: 75.1 kg

DRUGS (1)
  1. PACLITAXEL [Suspect]
     Active Substance: PACLITAXEL
     Indication: Lung neoplasm malignant
     Dates: start: 20240618

REACTIONS (7)
  - Gait disturbance [None]
  - Asthenia [None]
  - Moaning [None]
  - Musculoskeletal chest pain [None]
  - Infusion related reaction [None]
  - Acute coronary syndrome [None]
  - Pulmonary embolism [None]

NARRATIVE: CASE EVENT DATE: 20240618
